FAERS Safety Report 9416831 (Version 2)
Quarter: 2013Q3

REPORT INFORMATION
  Report Type: Spontaneous
  Country: US (occurrence: None)
  Receive Date: 20130719
  Receipt Date: 20130726
  Transmission Date: 20140515
  Serious: Yes (Hospitalization)
  Sender: FDA-Public Use
  Company Number: 2013ST000189

PATIENT
  Age: 40 Year
  Sex: Female

DRUGS (9)
  1. UCERIS [Suspect]
     Indication: COLITIS ULCERATIVE
     Dates: start: 20130708, end: 20130709
  2. ANTIBIOTICS [Concomitant]
  3. ASACOL [Concomitant]
  4. ANUSOL HC [Concomitant]
  5. APRISO [Concomitant]
  6. CANASA [Concomitant]
  7. METRONIDAZOLE [Concomitant]
  8. HYDROCODONE [Concomitant]
  9. LEVAQUIN [Concomitant]

REACTIONS (3)
  - Dysarthria [None]
  - Hallucination [None]
  - Drug hypersensitivity [None]
